FAERS Safety Report 24801376 (Version 2)
Quarter: 2025Q1

REPORT INFORMATION
  Report Type: Spontaneous
  Country: US (occurrence: US)
  Receive Date: 20250102
  Receipt Date: 20250114
  Transmission Date: 20250409
  Serious: Yes (Other)
  Sender: ABBVIE
  Company Number: US-ABBVIE-6067010

PATIENT
  Sex: Female

DRUGS (8)
  1. LUPRON [Suspect]
     Active Substance: LEUPROLIDE ACETATE
     Indication: Breast cancer female
     Route: 030
     Dates: start: 20170407
  2. DENOSUMAB [Concomitant]
     Active Substance: DENOSUMAB
     Indication: Product used for unknown indication
     Dates: start: 20170414
  3. PALBOCICLIB [Suspect]
     Active Substance: PALBOCICLIB
     Indication: Product used for unknown indication
     Dosage: FORM STRENGTH; 100 MG FREQUENCY: TAKE 1 TABLET BY MOUTH DAILY. TAKES 21 DAYS AND OFF 7 DAYS WITH ...
     Route: 048
     Dates: start: 20241121
  4. PALBOCICLIB [Suspect]
     Active Substance: PALBOCICLIB
     Indication: Product used for unknown indication
     Route: 048
     Dates: start: 20181026
  5. PALBOCICLIB [Suspect]
     Active Substance: PALBOCICLIB
     Indication: Product used for unknown indication
     Route: 048
     Dates: start: 20170414
  6. LETROZOLE [Concomitant]
     Active Substance: LETROZOLE
     Indication: Product used for unknown indication
     Dates: start: 20181026
  7. ZITHROMAX [Concomitant]
     Active Substance: AZITHROMYCIN DIHYDRATE
     Indication: Cough
     Dosage: STRENGTH: 250 MG
     Route: 048
     Dates: start: 20241126, end: 20241201
  8. ZITHROMAX [Concomitant]
     Active Substance: AZITHROMYCIN DIHYDRATE
     Indication: Cough
     Dosage: FORM STRENGTH: 250 MG FREQUENCY: 1 TABLET FOR 4 DAYS
     Route: 048

REACTIONS (6)
  - Hormone receptor positive breast cancer [Not Recovered/Not Resolved]
  - Musculoskeletal stiffness [Recovered/Resolved]
  - Fatigue [Recovered/Resolved]
  - Gastrointestinal disorder [Unknown]
  - Breast cancer metastatic [Not Recovered/Not Resolved]
  - Metastases to bone [Not Recovered/Not Resolved]
